FAERS Safety Report 13594094 (Version 6)
Quarter: 2018Q2

REPORT INFORMATION
  Report Type: Spontaneous
  Country: US (occurrence: US)
  Receive Date: 20170530
  Receipt Date: 20180504
  Transmission Date: 20180711
  Serious: Yes (Hospitalization, Disabling, Other)
  Sender: FDA-Public Use
  Company Number: US-GE HEALTHCARE LIFE SCIENCES-OSCN-PR-1403S-0068

PATIENT
  Age: 56 Year
  Sex: Female
  Weight: 88.5 kg

DRUGS (5)
  1. OMNISCAN [Suspect]
     Active Substance: GADODIAMIDE
     Indication: PRODUCT USED FOR UNKNOWN INDICATION
     Dosage: UNK UNK, SINGLE
     Route: 042
     Dates: start: 20060316, end: 20060316
  2. ASPIRIN. [Concomitant]
     Active Substance: ASPIRIN
     Dosage: ,
     Dates: start: 200511
  3. IRON [Concomitant]
     Active Substance: IRON
     Dosage: ,
  4. EPOGEN [Concomitant]
     Active Substance: ERYTHROPOIETIN
     Dosage: ,
  5. LASIX [Concomitant]
     Active Substance: FUROSEMIDE
     Dosage: UNK, PRN
     Route: 065

REACTIONS (8)
  - Pelvic fracture [Unknown]
  - Nephrogenic systemic fibrosis [Not Recovered/Not Resolved]
  - Fall [Recovered/Resolved]
  - Fractured sacrum [Unknown]
  - Cardiac failure congestive [Unknown]
  - Hip fracture [Unknown]
  - Heart rate irregular [Unknown]
  - Fluid retention [Unknown]

NARRATIVE: CASE EVENT DATE: 201004
